FAERS Safety Report 8884528 (Version 2)
Quarter: 2012Q4

REPORT INFORMATION
  Report Type: 
  Country: JP (occurrence: JP)
  Receive Date: 20121104
  Receipt Date: 20121121
  Transmission Date: 20130627
  Serious: Yes (Hospitalization)
  Sender: FDA-Public Use
  Company Number: JP-SANOFI-AVENTIS-2012SA078746

PATIENT
  Age: 51 Year
  Sex: Male

DRUGS (5)
  1. PREDNISOLONE [Suspect]
     Indication: IMMUNOSUPPRESSANT DRUG THERAPY
     Route: 048
  2. PREDNISOLONE [Suspect]
     Indication: IMMUNOSUPPRESSANT DRUG THERAPY
     Route: 048
  3. LASIX [Suspect]
     Indication: OEDEMA
     Route: 048
  4. LASIX [Suspect]
     Indication: OEDEMA
     Route: 048
  5. LOSARTAN [Concomitant]

REACTIONS (7)
  - Hepatic encephalopathy [Recovering/Resolving]
  - Coma [Recovering/Resolving]
  - Unresponsive to stimuli [Recovering/Resolving]
  - Streptococcal bacteraemia [Unknown]
  - Nephritis [Unknown]
  - Proteinuria [Recovering/Resolving]
  - Dehydration [Recovered/Resolved]
